FAERS Safety Report 17002896 (Version 1)
Quarter: 2019Q4

REPORT INFORMATION
  Report Type: Spontaneous
  Country: BR (occurrence: BR)
  Receive Date: 20191107
  Receipt Date: 20191107
  Transmission Date: 20200122
  Serious: Yes (Other)
  Sender: FDA-Public Use
  Company Number: BR-EMD SERONO-9126429

PATIENT
  Sex: Female

DRUGS (3)
  1. GLIFAGE [Suspect]
     Active Substance: METFORMIN HYDROCHLORIDE
     Indication: DIABETES MELLITUS
     Dosage: 1 TABLET IN THE MORNING AND 2 TABLETS AFTER LUNCH
     Route: 048
     Dates: start: 2014
  2. GLIFAGE [Suspect]
     Active Substance: METFORMIN HYDROCHLORIDE
     Dosage: 2 TABLETS AFTER LUNCH AND 2 TABLETS AFTER DINNER
     Route: 048
  3. GLIFAGE [Suspect]
     Active Substance: METFORMIN HYDROCHLORIDE
     Dosage: 1 TABLET IN MORNING AND 2 TABLETS AFTER DINNER
     Route: 048
     Dates: start: 2019

REACTIONS (11)
  - Dyspnoea [Unknown]
  - Stress [Unknown]
  - Hepatic calcification [Unknown]
  - Asthenia [Unknown]
  - Renal cyst [Unknown]
  - Cold sweat [Unknown]
  - Muscle spasms [Unknown]
  - Eye operation [Unknown]
  - Alopecia [Unknown]
  - Intentional product misuse [Unknown]
  - Hypertension [Unknown]

NARRATIVE: CASE EVENT DATE: 2018
